FAERS Safety Report 5344011-0 (Version None)
Quarter: 2007Q2

REPORT INFORMATION
  Report Type: 
  Country: None (occurrence: None)
  Receive Date: 20070604
  Receipt Date: 20070528
  Transmission Date: 20071010
  Serious: Yes (Death)
  Sender: FDA-Public Use
  Company Number: AU-AVENTIS-200714758GDDC

PATIENT
  Age: 69 Year
  Sex: Male

DRUGS (8)
  1. LANTUS [Suspect]
     Route: 058
     Dates: start: 20061001
  2. AUTOPEN INSULIN INJECTION PEN [Suspect]
  3. METFORMIN HCL [Concomitant]
     Dosage: DOSE: UNK
  4. ACTRAPID [Concomitant]
     Dosage: DOSE: UNK
  5. NORVASC [Concomitant]
     Dosage: DOSE: UNK
  6. FELDENE [Concomitant]
     Dosage: DOSE: UNK
  7. LIPITOR [Concomitant]
     Dosage: DOSE: UNK
  8. UNKNOWN DRUG [Concomitant]
     Dosage: DOSE: UNK

REACTIONS (1)
  - CARDIAC ARREST [None]
